FAERS Safety Report 22359812 (Version 2)
Quarter: 2023Q2

REPORT INFORMATION
  Report Type: Spontaneous
  Country: CO (occurrence: CO)
  Receive Date: 20230524
  Receipt Date: 20230614
  Transmission Date: 20230721
  Serious: Yes (Hospitalization, Other)
  Sender: FDA-Public Use
  Company Number: CO-AMRYT PHARMACEUTICALS DAC-AEGR006503

PATIENT

DRUGS (3)
  1. JUXTAPID [Suspect]
     Active Substance: LOMITAPIDE MESYLATE
     Indication: Hyperchylomicronaemia
     Dosage: 5 MILLIGRAM, EVERY 24 HOURS
     Route: 048
     Dates: start: 20210707, end: 20220725
  2. JUXTAPID [Suspect]
     Active Substance: LOMITAPIDE MESYLATE
     Dosage: 10 MILLIGRAM, EVERY 24 HOURS
     Route: 048
     Dates: start: 20220726, end: 20230514
  3. FISH OIL [Concomitant]
     Active Substance: FISH OIL
     Indication: Hypertriglyceridaemia
     Dosage: 1000 MILLIGRAM, EVERY 12 HOURS
     Dates: start: 20210707, end: 20230513

REACTIONS (6)
  - Hypertriglyceridaemia [Recovering/Resolving]
  - Hepatic enzyme increased [Unknown]
  - Constipation [Not Recovered/Not Resolved]
  - Diet noncompliance [Recovering/Resolving]
  - Off label use [Unknown]
  - Intentional product use issue [Unknown]

NARRATIVE: CASE EVENT DATE: 20230514
